FAERS Safety Report 24531287 (Version 1)
Quarter: 2024Q4

REPORT INFORMATION
  Report Type: Spontaneous
  Country: IQ (occurrence: IQ)
  Receive Date: 20241022
  Receipt Date: 20241022
  Transmission Date: 20250115
  Serious: Yes (Hospitalization)
  Sender: SANOFI AVENTIS
  Company Number: IQ-SA-2024SA299454

PATIENT
  Age: 52 Year
  Sex: Female
  Weight: 72 kg

DRUGS (3)
  1. SARCLISA [Suspect]
     Active Substance: ISATUXIMAB-IRFC
     Indication: Plasma cell myeloma refractory
     Dosage: UNK UNK, QW (10MG/KG, QW N FIRST CYCLE)
     Route: 042
     Dates: start: 20241014, end: 20241014
  2. POMALIDOMIDE [Concomitant]
     Active Substance: POMALIDOMIDE
     Indication: Plasma cell myeloma refractory
     Dosage: 4 MG, QD
     Route: 048
     Dates: start: 20240910
  3. DEXAMETHASONE [Concomitant]
     Active Substance: DEXAMETHASONE
     Indication: Plasma cell myeloma
     Dosage: 40 MG, QW
     Route: 042
     Dates: start: 20200312

REACTIONS (4)
  - Hypersensitivity [Unknown]
  - Dyspnoea [Unknown]
  - Hypotension [Unknown]
  - Chills [Unknown]

NARRATIVE: CASE EVENT DATE: 20241014
